FAERS Safety Report 9509684 (Version 1)
Quarter: 2013Q3

REPORT INFORMATION
  Report Type: Spontaneous
  Country: US (occurrence: US)
  Receive Date: 20130909
  Receipt Date: 20130909
  Transmission Date: 20140515
  Serious: Yes (Hospitalization)
  Sender: FDA-Public Use
  Company Number: US-BRISTOL-MYERS SQUIBB COMPANY-17185398

PATIENT
  Age: 73 Year
  Sex: Female

DRUGS (3)
  1. ABILIFY [Suspect]
     Indication: TACHYPHRENIA
     Dosage: LATE DEC2011 OR JAN 2012
  2. ABILIFY [Suspect]
     Indication: DEPRESSION
     Dosage: LATE DEC2011 OR JAN 2012
  3. LOVASTATIN [Concomitant]
     Indication: BLOOD CHOLESTEROL INCREASED

REACTIONS (1)
  - Depression [Not Recovered/Not Resolved]
